FAERS Safety Report 15280968 (Version 2)
Quarter: 2018Q4

REPORT INFORMATION
  Report Type: Spontaneous
  Country: DE (occurrence: DE)
  Receive Date: 20180815
  Receipt Date: 20181016
  Transmission Date: 20190204
  Serious: Yes (Other)
  Sender: FDA-Public Use
  Company Number: DE-TEVA-2018-DE-940320

PATIENT
  Age: 65 Year
  Sex: Male

DRUGS (1)
  1. VALSARTAN ABZ 160 MG FILMTABLETTEN [Suspect]
     Active Substance: VALSARTAN
     Route: 048

REACTIONS (2)
  - Bladder cancer [Unknown]
  - Dysuria [Unknown]
